FAERS Safety Report 9509879 (Version 2)
Quarter: 2013Q3

REPORT INFORMATION
  Report Type: Spontaneous
  Country: JP (occurrence: JP)
  Receive Date: 20130909
  Receipt Date: 20130924
  Transmission Date: 20140515
  Serious: Yes (Hospitalization)
  Sender: FDA-Public Use
  Company Number: JP-EISAI INC-E2090-02837-SPO-JP

PATIENT
  Age: 65 Year
  Sex: Female

DRUGS (6)
  1. EXCEGRAN [Suspect]
     Indication: CONVULSION PROPHYLAXIS
     Route: 048
     Dates: start: 20120105, end: 20120111
  2. DEPAKENE [Suspect]
     Indication: CONVULSION PROPHYLAXIS
     Dosage: 800 MG DAILY
     Route: 048
     Dates: start: 20111213, end: 20120105
  3. PREDONINE [Concomitant]
     Indication: HEPATITIS
     Dosage: 2.5 MG/DAY
     Route: 048
     Dates: start: 200303
  4. URSO [Concomitant]
     Indication: HEPATITIS
     Dosage: 300 MG/DAY
     Route: 048
  5. GASTER D [Concomitant]
     Indication: PRODUCT USED FOR UNKNOWN INDICATION
     Dosage: 40 MG/DAY
     Route: 048
  6. MEILAX [Concomitant]
     Indication: INSOMNIA
     Dosage: 0.5 MG/DAY
     Route: 048

REACTIONS (1)
  - Toxic epidermal necrolysis [Recovering/Resolving]
